FAERS Safety Report 16944158 (Version 1)
Quarter: 2019Q4

REPORT INFORMATION
  Report Type: Other
  Country: GB (occurrence: GB)
  Receive Date: 20191022
  Receipt Date: 20191022
  Transmission Date: 20200122
  Serious: Yes (Other)
  Sender: FDA-Public Use
  Company Number: GB-EMCURE PHARMACEUTICALS LTD-2019-EPL-0955

PATIENT
  Age: 30 Year
  Sex: Male
  Weight: 68 kg

DRUGS (6)
  1. CHLORAMPHENICOL [Concomitant]
     Active Substance: CHLORAMPHENICOL
     Dosage: 4 DOSAGE FORM, DAILY (APPLY)
     Dates: start: 20190904, end: 20190909
  2. FLUOXETINE [Concomitant]
     Active Substance: FLUOXETINE HYDROCHLORIDE
     Dosage: 1 DOSAGE FORM, DAILY
     Dates: start: 20190925
  3. SERTRALINE HYDROCHLORIDE. [Suspect]
     Active Substance: SERTRALINE HYDROCHLORIDE
     Indication: PRODUCT USED FOR UNKNOWN INDICATION
     Dosage: 50 MILLIGRAM
     Dates: start: 20190912
  4. PREDNISOLONE SODIUM PHOSPHATE. [Concomitant]
     Active Substance: PREDNISOLONE SODIUM PHOSPHATE
     Dosage: 2 DOSAGE FORM, TWICE DAILY
     Dates: end: 20190816
  5. DOXYCYCLINE. [Concomitant]
     Active Substance: DOXYCYCLINE
     Dosage: 4 DOSAGE FORM, DAILY
     Dates: start: 20190830
  6. PREDNISOLONE SODIUM PHOSPHATE. [Concomitant]
     Active Substance: PREDNISOLONE SODIUM PHOSPHATE
     Dosage: 3 DOSAGE FORM,3 TIMES DAILY RIGHT EYE 3 WEEKS THEN TWICE DAILY))
     Dates: start: 20190115

REACTIONS (2)
  - Swollen tongue [Recovered/Resolved]
  - Paraesthesia oral [Recovered/Resolved]

NARRATIVE: CASE EVENT DATE: 20190925
